FAERS Safety Report 7320689-7 (Version None)
Quarter: 2011Q1

REPORT INFORMATION
  Report Type: 
  Country: None (occurrence: None)
  Receive Date: 20110228
  Receipt Date: 20110215
  Transmission Date: 20110831
  Serious: Yes (Other)
  Sender: FDA-Public Use
  Company Number: US-ROCHE-735757

PATIENT
  Sex: Male
  Weight: 61.2 kg

DRUGS (2)
  1. ACHROMYCIN V [Concomitant]
     Dates: start: 19850727
  2. ACCUTANE [Suspect]
     Indication: ACNE
     Dosage: ACCUTANE 4O MG
     Route: 065
     Dates: start: 19850101, end: 19860107

REACTIONS (4)
  - SUICIDAL IDEATION [None]
  - COLITIS ULCERATIVE [None]
  - INFLAMMATORY BOWEL DISEASE [None]
  - GASTROINTESTINAL INJURY [None]
